FAERS Safety Report 8108866-9 (Version None)
Quarter: 2012Q1

REPORT INFORMATION
  Report Type: 
  Country: None (occurrence: None)
  Receive Date: 20120202
  Receipt Date: 20120131
  Transmission Date: 20120608
  Serious: Yes (Hospitalization)
  Sender: FDA-Public Use
  Company Number: US-GLAXOSMITHKLINE-A0915658A

PATIENT
  Age: 55 Year
  Sex: Female
  Weight: 110 kg

DRUGS (4)
  1. AMBIEN [Concomitant]
  2. NEURONTIN [Concomitant]
  3. AVANDIA [Suspect]
     Indication: DIABETES MELLITUS
     Dosage: 4MG PER DAY
     Route: 048
     Dates: start: 20040101, end: 20100301
  4. INSULIN [Concomitant]

REACTIONS (9)
  - CARDIOMYOPATHY [None]
  - FATIGUE [None]
  - MYOCARDIAL INFARCTION [None]
  - CORONARY ARTERY DISEASE [None]
  - THALAMUS HAEMORRHAGE [None]
  - HYPERTENSION [None]
  - CEREBROVASCULAR ACCIDENT [None]
  - HYPOAESTHESIA [None]
  - DYSLIPIDAEMIA [None]
